FAERS Safety Report 6627020-0 (Version None)
Quarter: 2010Q1

REPORT INFORMATION
  Report Type: 
  Country: None (occurrence: None)
  Receive Date: 20100311
  Receipt Date: 20100215
  Transmission Date: 20100710
  Serious: Yes (Life-Threatening, Other)
  Sender: FDA-Public Use
  Company Number: NO-PURDUE-GBR-2010-0006235

PATIENT
  Age: 62 Year
  Sex: Male

DRUGS (1)
  1. OXYCONTIN DEPOTTABLETTER [Suspect]
     Indication: DRUG USE FOR UNKNOWN INDICATION

REACTIONS (20)
  - ATRIAL FIBRILLATION [None]
  - BLOOD PRESSURE DECREASED [None]
  - CARDIAC FAILURE [None]
  - CHEST PAIN [None]
  - COUGH [None]
  - DIZZINESS [None]
  - DYSPNOEA [None]
  - HEART RATE DECREASED [None]
  - HOT FLUSH [None]
  - HYPERACUSIS [None]
  - HYPERHIDROSIS [None]
  - HYPERSENSITIVITY [None]
  - LOSS OF CONSCIOUSNESS [None]
  - MUSCLE INJURY [None]
  - NASAL CONGESTION [None]
  - PERIPHERAL COLDNESS [None]
  - PRURITUS [None]
  - SKIN REACTION [None]
  - TACHYCARDIA [None]
  - VISUAL IMPAIRMENT [None]
